FAERS Safety Report 5684750-5 (Version None)
Quarter: 2008Q1

REPORT INFORMATION
  Report Type: 
  Country: None (occurrence: None)
  Receive Date: 20080328
  Receipt Date: 20070910
  Transmission Date: 20080703
  Serious: Yes (Disabling, Other)
  Sender: FDA-Public Use
  Company Number: US-BRISTOL-MYERS SQUIBB COMPANY-13882972

PATIENT
  Age: 51 Year
  Sex: Male

DRUGS (7)
  1. ERBITUX [Suspect]
     Indication: SQUAMOUS CELL CARCINOMA
     Route: 042
     Dates: start: 20070702, end: 20070702
  2. RADIATION THERAPY [Suspect]
  3. HYDROCHLOROTHIAZIDE [Concomitant]
  4. LISINOPRIL [Concomitant]
  5. DILAUDID [Concomitant]
  6. BENADRYL [Concomitant]
  7. DEPAKOTE [Concomitant]

REACTIONS (1)
  - RADIATION SKIN INJURY [None]
